FAERS Safety Report 5191712-3 (Version None)
Quarter: 2006Q4

REPORT INFORMATION
  Report Type: 
  Country: None (occurrence: None)
  Receive Date: 20061219
  Receipt Date: 20061204
  Transmission Date: 20070319
  Serious: Yes (Hospitalization)
  Sender: FDA-Public Use
  Company Number: US-2006-029914

PATIENT
  Age: 64 Year
  Sex: Male
  Weight: 52 kg

DRUGS (4)
  1. BETASERON [Suspect]
     Indication: RELAPSING-REMITTING MULTIPLE SCLEROSIS
     Dosage: 8 MIU, EVERY 2D, SUBCUTANEOUS; 6 MIU, EVERY 2D, SUBCUTANEOUS
     Route: 058
     Dates: start: 20060901, end: 20061001
  2. BETASERON [Suspect]
     Indication: RELAPSING-REMITTING MULTIPLE SCLEROSIS
     Dosage: 8 MIU, EVERY 2D, SUBCUTANEOUS; 6 MIU, EVERY 2D, SUBCUTANEOUS
     Route: 058
     Dates: start: 20061001
  3. BETASERON [Suspect]
     Indication: RELAPSING-REMITTING MULTIPLE SCLEROSIS
     Dosage: 8 MIU, EVERY 2D, SUBCUTANEOUS; 6 MIU, EVERY 2D, SUBCUTANEOUS
     Route: 058
     Dates: start: 20061001
  4. PRESODINE [Concomitant]

REACTIONS (9)
  - ANAEMIA [None]
  - ASTHENIA [None]
  - BONE MARROW FAILURE [None]
  - DECREASED APPETITE [None]
  - FALL [None]
  - HYPOTENSION [None]
  - NAUSEA [None]
  - SPEECH DISORDER [None]
  - VOMITING [None]
